FAERS Safety Report 8129458-1 (Version None)
Quarter: 2012Q1

REPORT INFORMATION
  Report Type: 
  Country: None (occurrence: None)
  Receive Date: 20120210
  Receipt Date: 20120201
  Transmission Date: 20120608
  Serious: Yes (Death)
  Sender: FDA-Public Use
  Company Number: US-MYLANLABS-2012S1002365

PATIENT
  Age: 78 Year
  Sex: Male

DRUGS (6)
  1. INSULIN [Concomitant]
     Dates: start: 20070101
  2. DIGOXIN [Suspect]
     Indication: CARDIAC DISORDER
     Route: 048
     Dates: start: 20040101, end: 20070101
  3. FUROSEMIDE [Concomitant]
  4. COREG [Concomitant]
  5. FOSAMAX [Concomitant]
  6. CAPTOPRIL [Concomitant]

REACTIONS (1)
  - ISCHAEMIC CARDIOMYOPATHY [None]
